FAERS Safety Report 4577299-4 (Version None)
Quarter: 2005Q1

REPORT INFORMATION
  Report Type: 
  Country: None (occurrence: None)
  Receive Date: 20050131
  Receipt Date: 20040916
  Transmission Date: 20050727
  Serious: Yes (Other)
  Sender: FDA-Public Use
  Company Number: 200510040BBE

PATIENT
  Sex: Male

DRUGS (4)
  1. KOATE [Suspect]
     Indication: FACTOR VIII DEFICIENCY
     Dates: start: 19890101
  2. KOATE [Suspect]
     Indication: FACTOR VIII DEFICIENCY
     Dates: start: 19890601
  3. KOATE [Suspect]
     Indication: FACTOR VIII DEFICIENCY
     Dates: start: 19891201
  4. HEMOPHIL (FACTOR VIII (ANTIHAEMOPHILIC FACTOR) ) [Suspect]
     Indication: FACTOR VIII DEFICIENCY
     Dates: start: 19890301

REACTIONS (1)
  - HEPATITIS C VIRUS [None]
